FAERS Safety Report 17711206 (Version 4)
Quarter: 2021Q2

REPORT INFORMATION
  Report Type: Spontaneous
  Country: JP (occurrence: JP)
  Receive Date: 20200427
  Receipt Date: 20210506
  Transmission Date: 20210716
  Serious: Yes (Other)
  Sender: FDA-Public Use
  Company Number: JP-JNJFOC-20200423669

PATIENT
  Age: 60 Year
  Sex: Female
  Weight: 50.4 kg

DRUGS (54)
  1. UPTRAVI [Suspect]
     Active Substance: SELEXIPAG
     Route: 048
     Dates: start: 20180515, end: 20180924
  2. UPTRAVI [Suspect]
     Active Substance: SELEXIPAG
     Route: 048
     Dates: start: 20181226, end: 20190105
  3. ALLEGRA [Concomitant]
     Active Substance: FEXOFENADINE HYDROCHLORIDE
     Route: 048
     Dates: start: 20180511, end: 20180618
  4. BELSOMRA [Concomitant]
     Active Substance: SUVOREXANT
     Route: 048
     Dates: start: 20180129
  5. LAC?B [Concomitant]
     Active Substance: BIFIDOBACTERIUM SPP.
     Indication: NAUSEA
     Route: 048
     Dates: start: 20181116
  6. SYMPROTIN [Concomitant]
     Route: 065
     Dates: start: 20181229, end: 20190506
  7. MIGSIS [Concomitant]
     Active Substance: LOMERIZINE HYDROCHLORIDE
     Indication: HEADACHE
     Route: 048
     Dates: start: 20190104
  8. UPTRAVI [Suspect]
     Active Substance: SELEXIPAG
     Route: 048
     Dates: start: 20181108, end: 20181217
  9. AZOSEMIDE [Concomitant]
     Active Substance: AZOSEMIDE
     Indication: PULMONARY HYPERTENSION
     Route: 048
     Dates: start: 20180306
  10. SPIRONOLACTONE. [Concomitant]
     Active Substance: SPIRONOLACTONE
     Indication: PULMONARY HYPERTENSION
     Route: 048
     Dates: start: 20180925
  11. BROTIZOLAM [Concomitant]
     Active Substance: BROTIZOLAM
     Indication: INSOMNIA
     Route: 048
     Dates: start: 20181225, end: 20190107
  12. UPTRAVI [Suspect]
     Active Substance: SELEXIPAG
     Indication: PULMONARY ARTERIAL HYPERTENSION
     Route: 048
     Dates: start: 20170622, end: 20170825
  13. SHOSEIRYUTO                        /08000301/ [Concomitant]
     Active Substance: HERBALS
     Route: 065
     Dates: start: 20191203
  14. LOPEMIN                            /00384302/ [Concomitant]
     Active Substance: LOPERAMIDE HYDROCHLORIDE
     Indication: DIARRHOEA
     Route: 048
     Dates: start: 20181116
  15. UPTRAVI [Suspect]
     Active Substance: SELEXIPAG
     Dosage: 0.4 MG IN THE MORNING, 0.2 MG IN THE EVENING
     Route: 048
     Dates: start: 20180216, end: 20180305
  16. WARFARIN POTASSIUM [Suspect]
     Active Substance: WARFARIN POTASSIUM
     Indication: PRODUCT USED FOR UNKNOWN INDICATION
     Route: 048
     Dates: end: 20171026
  17. NAUZELIN [Concomitant]
     Active Substance: DOMPERIDONE
     Indication: NAUSEA
     Dates: start: 20181221, end: 20181227
  18. TRAMCET [Suspect]
     Active Substance: ACETAMINOPHEN\TRAMADOL
     Indication: HEADACHE
     Route: 048
     Dates: start: 20180605, end: 20191007
  19. TRAMCET [Suspect]
     Active Substance: ACETAMINOPHEN\TRAMADOL
     Route: 048
     Dates: start: 20180605
  20. UPTRAVI [Suspect]
     Active Substance: SELEXIPAG
     Route: 048
     Dates: start: 20180126, end: 20180215
  21. WARFARIN POTASSIUM [Suspect]
     Active Substance: WARFARIN POTASSIUM
     Route: 048
     Dates: start: 20180424, end: 20180805
  22. CODEINE PHOSPHATE HEMIHYDRATE [Suspect]
     Active Substance: CODEINE PHOSPHATE
     Route: 048
     Dates: end: 20190204
  23. CODEINE PHOSPHATE HEMIHYDRATE [Suspect]
     Active Substance: CODEINE PHOSPHATE
     Route: 048
     Dates: end: 20190204
  24. TAKECAB [Concomitant]
     Active Substance: VONOPRAZAN FUMARATE
     Indication: NAUSEA
     Route: 048
     Dates: start: 20181116, end: 20190603
  25. LUNESTA [Concomitant]
     Active Substance: ESZOPICLONE
     Indication: INSOMNIA
     Route: 048
     Dates: start: 20181218, end: 20181224
  26. REMERON [Concomitant]
     Active Substance: MIRTAZAPINE
     Indication: INSOMNIA
     Route: 048
     Dates: start: 20190107
  27. LINZESS [Concomitant]
     Active Substance: LINACLOTIDE
     Indication: CONSTIPATION
     Route: 048
     Dates: start: 20190205, end: 20190304
  28. CALONAL [Concomitant]
     Active Substance: ACETAMINOPHEN
     Indication: HEADACHE
     Route: 048
     Dates: start: 20180604
  29. UPTRAVI [Suspect]
     Active Substance: SELEXIPAG
     Route: 048
     Dates: start: 20180306, end: 20180423
  30. OPSUMIT [Suspect]
     Active Substance: MACITENTAN
     Indication: PULMONARY ARTERIAL HYPERTENSION
     Route: 048
     Dates: start: 20170323
  31. ALLEGRA [Concomitant]
     Active Substance: FEXOFENADINE HYDROCHLORIDE
     Route: 048
     Dates: start: 20190305, end: 20190401
  32. VENTAVIS [Concomitant]
     Active Substance: ILOPROST
     Route: 065
  33. ESZOPICLONE. [Concomitant]
     Active Substance: ESZOPICLONE
     Route: 065
  34. CIMETIDINE [Concomitant]
     Active Substance: CIMETIDINE
     Route: 065
     Dates: start: 20190604, end: 20200121
  35. FAMOTIDINE. [Concomitant]
     Active Substance: FAMOTIDINE
     Route: 065
     Dates: start: 20200122
  36. NALDEMEDINE TOSILATE [Concomitant]
     Active Substance: NALDEMEDINE TOSYLATE
     Indication: CONSTIPATION
     Route: 048
     Dates: start: 20181229, end: 20190507
  37. UPTRAVI [Suspect]
     Active Substance: SELEXIPAG
     Route: 048
     Dates: start: 20180424, end: 20180514
  38. UPTRAVI [Suspect]
     Active Substance: SELEXIPAG
     Route: 048
     Dates: start: 20181218, end: 20181225
  39. REVATIO [Suspect]
     Active Substance: SILDENAFIL CITRATE
     Indication: PULMONARY ARTERIAL HYPERTENSION
     Route: 048
  40. REVATIO [Suspect]
     Active Substance: SILDENAFIL CITRATE
     Route: 048
     Dates: start: 20170206
  41. WARFARIN POTASSIUM [Suspect]
     Active Substance: WARFARIN POTASSIUM
     Route: 048
     Dates: start: 20171027, end: 20180423
  42. HALCION [Concomitant]
     Active Substance: TRIAZOLAM
     Route: 048
     Dates: start: 20180605
  43. ALLEGRA [Concomitant]
     Active Substance: FEXOFENADINE HYDROCHLORIDE
     Indication: RHINITIS ALLERGIC
     Dates: start: 20180511, end: 20190401
  44. TRAZODONE HYDROCHLORIDE. [Concomitant]
     Active Substance: TRAZODONE HYDROCHLORIDE
     Route: 048
     Dates: start: 20180130
  45. ALESION [Concomitant]
     Active Substance: EPINASTINE HYDROCHLORIDE
     Indication: RHINITIS ALLERGIC
     Route: 048
     Dates: start: 20190402, end: 20190603
  46. CALONAL [Concomitant]
     Active Substance: ACETAMINOPHEN
     Route: 048
     Dates: start: 20180731
  47. TRAMCET [Suspect]
     Active Substance: ACETAMINOPHEN\TRAMADOL
     Route: 048
     Dates: start: 20191008
  48. UPTRAVI [Suspect]
     Active Substance: SELEXIPAG
     Route: 048
     Dates: start: 20180925, end: 20181107
  49. UPTRAVI [Suspect]
     Active Substance: SELEXIPAG
     Route: 048
     Dates: start: 20190106
  50. CODEINE PHOSPHATE HEMIHYDRATE [Suspect]
     Active Substance: CODEINE PHOSPHATE
     Indication: DIARRHOEA
     Route: 048
     Dates: start: 20180126
  51. GASMOTIN [Concomitant]
     Active Substance: MOSAPRIDE CITRATE
     Indication: DECREASED APPETITE
     Route: 048
     Dates: start: 20180925
  52. LAC?B [Concomitant]
     Active Substance: BIFIDOBACTERIUM SPP.
     Indication: DIARRHOEA
  53. MIYA?BM [Concomitant]
     Active Substance: CLOSTRIDIUM BUTYRICUM SPORES STRAIN M-55
     Dates: start: 20181225, end: 20190204
  54. OXYGEN. [Concomitant]
     Active Substance: OXYGEN
     Route: 065

REACTIONS (13)
  - Vitreous haemorrhage [Recovered/Resolved]
  - Decreased appetite [Recovering/Resolving]
  - Myalgia [Recovering/Resolving]
  - Contraindication to medical treatment [Unknown]
  - Constipation [Recovered/Resolved]
  - Arthralgia [Recovering/Resolving]
  - Neuralgia [Unknown]
  - Pain [Unknown]
  - Headache [Recovered/Resolved]
  - Pain in jaw [Recovered/Resolved]
  - Diarrhoea [Recovered/Resolved]
  - Nausea [Recovering/Resolving]
  - Off label use [Unknown]

NARRATIVE: CASE EVENT DATE: 20180605
